FAERS Safety Report 5391863-4 (Version None)
Quarter: 2007Q3

REPORT INFORMATION
  Report Type: 
  Country: None (occurrence: None)
  Receive Date: 20070718
  Receipt Date: 20070711
  Transmission Date: 20080115
  Serious: Yes (Other)
  Sender: FDA-Public Use
  Company Number: 2007BI012190

PATIENT
  Age: 34 Year
  Sex: Female
  Weight: 61.2356 kg

DRUGS (7)
  1. AVONEX LYOPHILIZED [Suspect]
     Indication: MULTIPLE SCLEROSIS
     Dosage: 30 UG;QW; IM
     Route: 030
     Dates: start: 19990101, end: 20000101
  2. AVONEX [Suspect]
     Indication: MULTIPLE SCLEROSIS
     Dosage: 30 UG;QW; IM
     Route: 030
     Dates: start: 20070401
  3. OXYCONTIN [Concomitant]
  4. VALIUM [Concomitant]
  5. BACLOFEN [Concomitant]
  6. LEXAPRO [Concomitant]
  7. STEROID PACK [Concomitant]

REACTIONS (3)
  - CONVERSION DISORDER [None]
  - CONVULSION [None]
  - INFLUENZA LIKE ILLNESS [None]
